FAERS Safety Report 10927135 (Version 1)
Quarter: 2015Q1

REPORT INFORMATION
  Report Type: Spontaneous
  Country: US (occurrence: None)
  Receive Date: 20150316
  Receipt Date: 20150316
  Transmission Date: 20150721
  Serious: Yes (Other)
  Sender: FDA-Public Use
  Company Number: 201503039

PATIENT
  Age: 44 Year
  Sex: Male
  Weight: 83.46 kg

DRUGS (1)
  1. XIAFLEX [Suspect]
     Active Substance: COLLAGENASE CLOSTRIDIUM HISTOLYTICUM
     Indication: PEYRONIE^S DISEASE
     Dosage: INTRALESIONAL
     Dates: start: 20141201, end: 20141201

REACTIONS (8)
  - Nodule [None]
  - Skin discolouration [None]
  - Inappropriate schedule of drug administration [None]
  - Painful erection [None]
  - Penis disorder [None]
  - Treatment failure [None]
  - Penile swelling [None]
  - Erectile dysfunction [None]

NARRATIVE: CASE EVENT DATE: 201412
